FAERS Safety Report 4709372-1 (Version None)
Quarter: 2005Q3

REPORT INFORMATION
  Report Type: 
  Country: None (occurrence: None)
  Receive Date: 20050708
  Receipt Date: 20050509
  Transmission Date: 20060218
  Serious: Yes (Other)
  Sender: FDA-Public Use
  Company Number: US-BRISTOL-MYERS SQUIBB COMPANY-12962163

PATIENT
  Age: 72 Year
  Sex: Female

DRUGS (4)
  1. ERBITUX [Suspect]
     Indication: COLORECTAL CANCER
     Dosage: THERAPY START DATE 28-APR-05 AND CONTINUING (352 MG).
     Route: 042
     Dates: start: 20050505, end: 20050505
  2. BENADRYL [Suspect]
     Indication: PREMEDICATION
     Dosage: DOSE REDUCED TO 25 MG
     Route: 042
     Dates: start: 20050505, end: 20050505
  3. CARBOPLATIN [Concomitant]
  4. GEMZAR [Concomitant]

REACTIONS (2)
  - BLOOD PRESSURE DECREASED [None]
  - HEART RATE DECREASED [None]
